FAERS Safety Report 21750332 (Version 1)
Quarter: 2022Q4

REPORT INFORMATION
  Report Type: Other
  Country: US (occurrence: US)
  Receive Date: 20221219
  Receipt Date: 20221219
  Transmission Date: 20230113
  Serious: No
  Sender: FDA-Public Use
  Company Number: US-Global Blood Therapeutics Inc-US-GBT-22-03971

PATIENT
  Sex: Male

DRUGS (4)
  1. OXBRYTA [Suspect]
     Active Substance: VOXELOTOR
     Indication: Sickle cell disease
     Route: 048
  2. HYDROXYUREA [Concomitant]
     Active Substance: HYDROXYUREA
     Indication: Product used for unknown indication
     Route: 065
  3. Vitamin D 2000 Units [Concomitant]
     Indication: Product used for unknown indication
     Route: 048
  4. Folic acid 1 mg [Concomitant]
     Route: 048

REACTIONS (2)
  - Pyrexia [Unknown]
  - Nausea [Unknown]
